FAERS Safety Report 7515699-0 (Version None)
Quarter: 2011Q2

REPORT INFORMATION
  Report Type: 
  Country: None (occurrence: None)
  Receive Date: 20110601
  Receipt Date: 20110527
  Transmission Date: 20111010
  Serious: Yes (Hospitalization, Other)
  Sender: FDA-Public Use
  Company Number: US-NAPPMUNDI-USA-2010-0042351

PATIENT
  Sex: Male
  Weight: 90.703 kg

DRUGS (21)
  1. BLINDED THERAPY [Suspect]
     Indication: OSTEOARTHRITIS
     Dosage: UNK
     Dates: start: 20080121, end: 20101112
  2. HYOSCYAMINE [Concomitant]
     Indication: PRODUCT USED FOR UNKNOWN INDICATION
     Dosage: UNK
     Dates: start: 20000203
  3. CYCLOBENZAPRINE HYDROCHLORIDE [Concomitant]
     Dosage: UNK
     Dates: start: 20080206
  4. MSIR CAPSULES [Concomitant]
     Dosage: UNK
     Dates: start: 20080305
  5. DEPAKOTE [Concomitant]
     Dosage: UNK
     Dates: start: 20080527
  6. INDERAL [Concomitant]
     Dosage: UNK
     Dates: start: 19941213
  7. LASIX [Concomitant]
     Dosage: UNK
     Dates: start: 20030815
  8. BLINDED THERAPY [Suspect]
     Indication: RHEUMATOID ARTHRITIS
  9. FOSAMAX [Concomitant]
     Dosage: UNK
     Dates: start: 20040512
  10. MS CONTIN [Suspect]
     Indication: OSTEOARTHRITIS
     Dosage: 15 MG, TID
     Dates: start: 20080305
  11. ASPIRIN [Concomitant]
     Dosage: UNK
     Dates: start: 19930101
  12. DARVON [Concomitant]
     Dosage: UNK
     Dates: start: 19930106
  13. TRAMADOL HCL [Concomitant]
     Dosage: UNK
     Dates: start: 19970415
  14. ZOLOFT [Concomitant]
     Dosage: UNK
     Dates: start: 20031208
  15. NEXIUM [Concomitant]
     Dosage: UNK
     Dates: start: 20010820
  16. TRENTAL [Concomitant]
     Dosage: UNK
     Dates: start: 19950118
  17. CRESTOR [Concomitant]
     Dosage: UNK
     Dates: start: 20040128
  18. MS CONTIN [Suspect]
     Indication: NECK PAIN
  19. REGLAN [Concomitant]
     Dosage: UNK
     Dates: start: 19921209
  20. LOTREL [Concomitant]
     Dosage: UNK
     Dates: start: 20030821
  21. OXYGEN [Concomitant]
     Dosage: UNK
     Dates: start: 20080517

REACTIONS (2)
  - PERICARDIAL EFFUSION [None]
  - MUSCULOSKELETAL CHEST PAIN [None]
